FAERS Safety Report 10028451 (Version 2)
Quarter: 2014Q2

REPORT INFORMATION
  Report Type: Report from Study
  Country: JP (occurrence: JP)
  Receive Date: 20140321
  Receipt Date: 20140408
  Transmission Date: 20141212
  Serious: Yes (Death)
  Sender: FDA-Public Use
  Company Number: JP-BRISTOL-MYERS SQUIBB COMPANY-20544870

PATIENT
  Age: 79 Year
  Sex: Male
  Weight: 73 kg

DRUGS (4)
  1. ELIQUIS [Suspect]
     Indication: THROMBOSIS PROPHYLAXIS
     Dosage: TABS
     Route: 048
     Dates: start: 20140215, end: 20140309
  2. ASPIRIN [Concomitant]
     Indication: THROMBOSIS PROPHYLAXIS
     Route: 048
     Dates: end: 20140309
  3. NIVADIL [Concomitant]
     Indication: HYPERTENSION
     Route: 048
     Dates: end: 20140309
  4. ITOROL [Concomitant]
     Indication: ANGINA PECTORIS
     Route: 048
     Dates: end: 20140309

REACTIONS (1)
  - Interstitial lung disease [Fatal]
